FAERS Safety Report 11758434 (Version 13)
Quarter: 2017Q1

REPORT INFORMATION
  Report Type: Report from Study
  Country: US (occurrence: US)
  Receive Date: 20151120
  Receipt Date: 20170217
  Transmission Date: 20170428
  Serious: Yes (Hospitalization, Other)
  Sender: FDA-Public Use
  Company Number: US-BAYER-2015-465048

PATIENT
  Age: 46 Year
  Sex: Female
  Weight: 68.03 kg

DRUGS (9)
  1. ADEMPAS [Suspect]
     Active Substance: RIOCIGUAT
     Indication: PULMONARY HYPERTENSION
     Dosage: 2.5 MG, TID
     Route: 048
  2. ADEMPAS [Suspect]
     Active Substance: RIOCIGUAT
     Indication: PULMONARY HYPERTENSION
     Dosage: 1 MG, TID
     Route: 048
  3. ADEMPAS [Suspect]
     Active Substance: RIOCIGUAT
     Indication: PULMONARY HYPERTENSION
     Dosage: 2 MG, TID
     Route: 048
  4. ADEMPAS [Suspect]
     Active Substance: RIOCIGUAT
     Indication: PULMONARY HYPERTENSION
     Dosage: 2.5 MG, TID
     Route: 048
     Dates: start: 20151111
  5. ADEMPAS [Suspect]
     Active Substance: RIOCIGUAT
     Indication: PULMONARY HYPERTENSION
     Dosage: 2.5 MG, TID
     Route: 048
     Dates: start: 20151111
  6. ADEMPAS [Suspect]
     Active Substance: RIOCIGUAT
     Indication: PULMONARY HYPERTENSION
     Dosage: UNK
     Route: 048
     Dates: start: 20151015
  7. ADEMPAS [Suspect]
     Active Substance: RIOCIGUAT
     Indication: PULMONARY HYPERTENSION
     Dosage: 2.5 MG, TID
     Route: 048
     Dates: start: 20151111
  8. ADEMPAS [Suspect]
     Active Substance: RIOCIGUAT
     Indication: PULMONARY HYPERTENSION
     Dosage: 1.5 MG, TID
     Route: 048
     Dates: start: 20151111
  9. PRADAXA [Concomitant]
     Active Substance: DABIGATRAN ETEXILATE MESYLATE
     Dosage: UNK

REACTIONS (32)
  - Menorrhagia [Unknown]
  - Diarrhoea [Unknown]
  - Vomiting [Unknown]
  - Intentional product misuse [None]
  - Fatigue [Unknown]
  - Dyspepsia [Not Recovered/Not Resolved]
  - Dyspnoea [Unknown]
  - Muscular weakness [Unknown]
  - Dizziness [Not Recovered/Not Resolved]
  - Oedema peripheral [None]
  - Vaginal haemorrhage [Not Recovered/Not Resolved]
  - Dyspepsia [Not Recovered/Not Resolved]
  - Dyspnoea [Unknown]
  - Generalised oedema [None]
  - Feeling of body temperature change [None]
  - Heart rate increased [Unknown]
  - Cardiac disorder [None]
  - Vaginal haemorrhage [Unknown]
  - Vaginal haemorrhage [None]
  - Chest pain [Unknown]
  - Dizziness [Unknown]
  - Gait disturbance [None]
  - Dyspnoea [None]
  - Dyspnoea [Not Recovered/Not Resolved]
  - Productive cough [Unknown]
  - Hospitalisation [Unknown]
  - Dyspnoea [Unknown]
  - Dyspepsia [None]
  - Chest pain [Not Recovered/Not Resolved]
  - Chest pain [Unknown]
  - Hot flush [None]
  - Uterine leiomyoma [Unknown]

NARRATIVE: CASE EVENT DATE: 20151110
